FAERS Safety Report 4349433-2 (Version None)
Quarter: 2004Q2

REPORT INFORMATION
  Report Type: 
  Country: None (occurrence: None)
  Receive Date: 20040428
  Receipt Date: 20040415
  Transmission Date: 20050107
  Serious: Yes (Other)
  Sender: FDA-Public Use
  Company Number: PHFR2004GB01816

PATIENT
  Age: 20 Year
  Sex: Male

DRUGS (1)
  1. CARBAMAZEPINE [Suspect]
     Dosage: 200 MG, BID

REACTIONS (4)
  - AGITATION [None]
  - INTENTIONAL SELF-INJURY [None]
  - THIRST [None]
  - WHITE BLOOD CELL COUNT INCREASED [None]
